FAERS Safety Report 7551134-4 (Version None)
Quarter: 2011Q2

REPORT INFORMATION
  Report Type: 
  Country: None (occurrence: None)
  Receive Date: 20110616
  Receipt Date: 20110610
  Transmission Date: 20111010
  Serious: Yes (Other)
  Sender: FDA-Public Use
  Company Number: US-PFIZER INC-2010087651

PATIENT
  Sex: Male

DRUGS (5)
  1. DILANTIN [Suspect]
     Indication: CONVULSION
     Dosage: 50 MG AT BEDTIME
     Route: 048
  2. DILANTIN KAPSEAL [Suspect]
     Indication: CONVULSION
     Dosage: UNK
     Route: 048
  3. TRILEPTAL [Suspect]
  4. PHENOBARBITAL TAB [Suspect]
  5. DILANTIN [Suspect]
     Route: 048

REACTIONS (7)
  - ASTHENIA [None]
  - PAIN IN EXTREMITY [None]
  - BALANCE DISORDER [None]
  - HYPOAESTHESIA [None]
  - ATAXIA [None]
  - GAIT DISTURBANCE [None]
  - NEUROPATHY PERIPHERAL [None]
